FAERS Safety Report 8019719-9 (Version None)
Quarter: 2012Q1

REPORT INFORMATION
  Report Type: 
  Country: None (occurrence: None)
  Receive Date: 20120103
  Receipt Date: 20111221
  Transmission Date: 20120608
  Serious: Yes (Other)
  Sender: FDA-Public Use
  Company Number: JP-GLAXOSMITHKLINE-B0752453A

PATIENT
  Sex: Female

DRUGS (3)
  1. ROHYPNOL [Concomitant]
     Indication: SLEEP DISORDER
     Dosage: 1MG PER DAY
     Route: 048
     Dates: start: 20110809, end: 20111003
  2. ROZEREM [Concomitant]
     Indication: SLEEP DISORDER
     Dosage: 8MG PER DAY
     Route: 048
     Dates: start: 20110711, end: 20111003
  3. LAMICTAL [Suspect]
     Indication: BIPOLAR DISORDER
     Route: 048
     Dates: start: 20110726, end: 20110905

REACTIONS (6)
  - LYMPH NODE PAIN [None]
  - LYMPHADENITIS [None]
  - MALAISE [None]
  - LYMPHADENOPATHY [None]
  - PYREXIA [None]
  - HEADACHE [None]
